FAERS Safety Report 9521942 (Version 1)
Quarter: 2013Q3

REPORT INFORMATION
  Report Type: Spontaneous
  Country: DE (occurrence: None)
  Receive Date: 20130911
  Receipt Date: 20130911
  Transmission Date: 20140515
  Serious: Yes (Other)
  Sender: FDA-Public Use
  Company Number: USA/GER/13/0034453

PATIENT
  Age: 50 Year
  Sex: Male

DRUGS (6)
  1. IBUPROFEN (IBUPROFEN) [Suspect]
     Indication: TOOTHACHE
  2. AMPHOTERICIN B [Suspect]
     Indication: IMMUNOSUPPRESSION
  3. MILTEFOSINE [Suspect]
     Indication: PRODUCT USED FOR UNKNOWN INDICATION
  4. TENOFOVIR [Suspect]
     Indication: HIV TEST POSITIVE
  5. EMTRICITABINE [Suspect]
     Indication: HIV TEST POSITIVE
  6. RALTEGRAVIR [Suspect]
     Indication: HIV TEST POSITIVE

REACTIONS (2)
  - Mucocutaneous leishmaniasis [None]
  - Renal failure [None]
